FAERS Safety Report 12513090 (Version 2)
Quarter: 2018Q3

REPORT INFORMATION
  Report Type: Spontaneous
  Country: US (occurrence: US)
  Receive Date: 20160630
  Receipt Date: 20180731
  Transmission Date: 20181010
  Serious: No
  Sender: FDA-Public Use
  Company Number: US-HORIZON-RAV-0114-2016

PATIENT
  Age: 18 Month
  Sex: Male

DRUGS (1)
  1. RAVICTI [Suspect]
     Active Substance: GLYCEROL PHENYLBUTYRATE
     Indication: CARBAMOYL PHOSPHATE SYNTHETASE DEFICIENCY
     Dosage: 1.5 ML TWICE DAILY, 1 ML ONCE DAILY FOR A TOTAL OF 4 ML DAILY

REACTIONS (2)
  - Cough [Unknown]
  - Body temperature increased [Unknown]

NARRATIVE: CASE EVENT DATE: 20160623
